FAERS Safety Report 6445398-8 (Version None)
Quarter: 2009Q4

REPORT INFORMATION
  Report Type: 
  Country: None (occurrence: None)
  Receive Date: 20091118
  Receipt Date: 20091105
  Transmission Date: 20100525
  Serious: Yes (Hospitalization)
  Sender: FDA-Public Use
  Company Number: PHEH2009US15251

PATIENT
  Age: 70 Year
  Sex: Male

DRUGS (4)
  1. GLEEVEC [Suspect]
     Indication: GASTROINTESTINAL STROMAL TUMOUR
     Dosage: 400 MG, QD
     Route: 048
     Dates: start: 20050101
  2. RAMIPRIL [Concomitant]
  3. ZOCOR [Concomitant]
  4. LOPID [Concomitant]

REACTIONS (3)
  - CHOLECYSTITIS [None]
  - GALLBLADDER OPERATION [None]
  - PROCEDURAL PAIN [None]
